FAERS Safety Report 5534818-9 (Version None)
Quarter: 2007Q4

REPORT INFORMATION
  Report Type: 
  Country: None (occurrence: None)
  Receive Date: 20071120
  Receipt Date: 20070828
  Transmission Date: 20080405
  Serious: No
  Sender: FDA-Public Use
  Company Number: WAES 0707USA01292

PATIENT
  Age: 69 Year
  Sex: Female

DRUGS (7)
  1. JANUVIA [Suspect]
     Indication: TYPE 2 DIABETES MELLITUS
     Dosage: 100 MG/DAILY/PO
     Route: 048
     Dates: start: 20070704, end: 20070706
  2. COZAAR [Concomitant]
  3. LIPITOR [Concomitant]
  4. NORVASC [Concomitant]
  5. ASPIRIN [Concomitant]
  6. ATENOLOL [Concomitant]
  7. METFORMIN HCL [Concomitant]

REACTIONS (2)
  - BLOOD GLUCOSE DECREASED [None]
  - MUSCLE SPASMS [None]
